FAERS Safety Report 23640592 (Version 1)
Quarter: 2024Q1

REPORT INFORMATION
  Report Type: Other
  Country: ZA (occurrence: None)
  Receive Date: 20240318
  Receipt Date: 20240318
  Transmission Date: 20240410
  Serious: Yes (Other)
  Sender: FDA-Public Use
  Company Number: ZA-ROCHE-3521792

PATIENT
  Sex: Female

DRUGS (2)
  1. OCREVUS [Suspect]
     Active Substance: OCRELIZUMAB
     Indication: Multiple sclerosis
     Dosage: THEREAFTER 600MG EVERY 6 MONTHS
     Route: 042
     Dates: start: 20231005
  2. OCREVUS [Suspect]
     Active Substance: OCRELIZUMAB
     Indication: Systemic lupus erythematosus

REACTIONS (2)
  - Expanded disability status scale score increased [Unknown]
  - Multiple sclerosis [Unknown]
